FAERS Safety Report 18058192 (Version 1)
Quarter: 2020Q3

REPORT INFORMATION
  Report Type: Spontaneous
  Country: GB (occurrence: GB)
  Receive Date: 20200723
  Receipt Date: 20200723
  Transmission Date: 20201103
  Serious: Yes (Other)
  Sender: FDA-Public Use
  Company Number: GB-BIOGEN-2020BI00899209

PATIENT
  Age: 47 Year
  Sex: Female
  Weight: 85 kg

DRUGS (1)
  1. PLEGRIDY [Suspect]
     Active Substance: PEGINTERFERON BETA-1A
     Indication: RELAPSING-REMITTING MULTIPLE SCLEROSIS
     Route: 051
     Dates: start: 20191217, end: 20200504

REACTIONS (4)
  - Fatigue [Recovered/Resolved]
  - Arthralgia [Recovered/Resolved]
  - Diplopia [Recovered/Resolved]
  - Depression [Recovered/Resolved]

NARRATIVE: CASE EVENT DATE: 20191217
